FAERS Safety Report 8464153-0 (Version None)
Quarter: 2012Q2

REPORT INFORMATION
  Report Type: 
  Country: None (occurrence: None)
  Receive Date: 20120625
  Receipt Date: 20120611
  Transmission Date: 20120825
  Serious: No
  Sender: FDA-Public Use
  Company Number: US-ASTRAZENECA-2011SE39084

PATIENT
  Age: 44 Year
  Sex: Female

DRUGS (5)
  1. H2B [Concomitant]
  2. ZANTAC [Concomitant]
  3. PEPCID [Concomitant]
  4. NEXIUM [Suspect]
     Route: 048
  5. PRILOSEC [Suspect]
     Route: 048

REACTIONS (7)
  - NASOPHARYNGITIS [None]
  - DUODENAL ULCER [None]
  - GASTROOESOPHAGEAL REFLUX DISEASE [None]
  - DRUG INEFFECTIVE [None]
  - HIATUS HERNIA [None]
  - MALAISE [None]
  - VOMITING [None]
